FAERS Safety Report 21177669 (Version 1)
Quarter: 2022Q3

REPORT INFORMATION
  Report Type: Spontaneous
  Country: US (occurrence: None)
  Receive Date: 20220804
  Receipt Date: 20220804
  Transmission Date: 20221027
  Serious: Yes (Other)
  Sender: FDA-Public Use
  Company Number: None

PATIENT
  Age: 21 Month
  Sex: Male

DRUGS (5)
  1. HEMLIBRA [Suspect]
     Active Substance: EMICIZUMAB-KXWH
     Indication: Factor VII deficiency
     Dosage: 60 MG /0.4ML?INJECT 60 MG (0.4 ML) UNDER THE SKIN (SUBCUTANEOUS INJECTION) ONCE EVERY 14 DAYS
     Route: 058
     Dates: start: 20210727
  2. ADVATE INJ [Concomitant]
  3. ADVATE SDV BAXJECT II [Concomitant]
  4. HYDROCORT CRE [Concomitant]
  5. SODIUM CHLORIDE [Concomitant]
     Active Substance: SODIUM CHLORIDE

REACTIONS (2)
  - Post procedural haemorrhage [None]
  - Head injury [None]

NARRATIVE: CASE EVENT DATE: 20220713
